FAERS Safety Report 8997136 (Version 1)
Quarter: 2013Q1

REPORT INFORMATION
  Report Type: Spontaneous
  Country: US (occurrence: US)
  Receive Date: 20130104
  Receipt Date: 20130104
  Transmission Date: 20140127
  Serious: No
  Sender: FDA-Public Use
  Company Number: US-009507513-1212USA001223

PATIENT
  Age: 6 Year
  Sex: Male

DRUGS (3)
  1. SINGULAIR [Suspect]
     Indication: ASTHMA
     Dosage: 4 MG, QD
     Route: 048
     Dates: start: 2007, end: 20121128
  2. NASONEX [Concomitant]
  3. FLOVENT [Concomitant]

REACTIONS (4)
  - Abnormal behaviour [Recovering/Resolving]
  - Depression [Recovering/Resolving]
  - Morbid thoughts [Recovering/Resolving]
  - Drug prescribing error [Unknown]
